FAERS Safety Report 7600772-9 (Version None)
Quarter: 2011Q2

REPORT INFORMATION
  Report Type: 
  Country: None (occurrence: None)
  Receive Date: 20110627
  Receipt Date: 20110127
  Transmission Date: 20111010
  Serious: Yes (Disabling, Other)
  Sender: FDA-Public Use
  Company Number: FK201100091

PATIENT
  Sex: Female

DRUGS (4)
  1. SENSORCAINE [Suspect]
     Indication: MUSCULOSKELETAL PAIN
     Dosage: UNKNOWN, CONTINUOUS VIA PUMP RIGHT SHOULDER, INTRA-ARTICULAR
     Route: 014
     Dates: start: 20060419, end: 20060421
  2. SENSORCAINE [Suspect]
     Indication: MUSCULOSKELETAL PAIN
     Dosage: UNKNOWN, CONTINUOUS VIA PUMP RIGHT SHOULDER, INTRA-ARTICULAR
     Route: 014
     Dates: start: 20060214
  3. DONJOY PAIN PUMP [Suspect]
     Indication: MUSCULOSKELETAL PAIN
     Dosage: RIGHT SHOULDER ; RIGHT SHOULDER
     Dates: start: 20060214
  4. DONJOY PAIN PUMP [Suspect]
     Indication: MUSCULOSKELETAL PAIN
     Dosage: RIGHT SHOULDER ; RIGHT SHOULDER
     Dates: start: 20060419, end: 20060421

REACTIONS (3)
  - MUSCULOSKELETAL PAIN [None]
  - CHONDROLYSIS [None]
  - JOINT RANGE OF MOTION DECREASED [None]
